APPROVED DRUG PRODUCT: DEFLAZACORT
Active Ingredient: DEFLAZACORT
Strength: 22.75MG/ML
Dosage Form/Route: SUSPENSION;ORAL
Application: A219930 | Product #001 | TE Code: AB
Applicant: SUN PHARMACEUTICAL INDUSTRIES INC
Approved: Jan 27, 2026 | RLD: No | RS: No | Type: RX